FAERS Safety Report 22094479 (Version 1)
Quarter: 2023Q1

REPORT INFORMATION
  Report Type: Spontaneous
  Country: US (occurrence: US)
  Receive Date: 20230314
  Receipt Date: 20230314
  Transmission Date: 20230418
  Serious: Yes (Other)
  Sender: FDA-Public Use
  Company Number: US-BAUSCH-BL-2023-004343

PATIENT
  Age: 43 Year
  Sex: Female

DRUGS (2)
  1. WELLBUTRIN XL [Suspect]
     Active Substance: BUPROPION HYDROCHLORIDE
     Indication: Product used for unknown indication
     Route: 065
  2. TOLTERODINE [Suspect]
     Active Substance: TOLTERODINE
     Indication: Product used for unknown indication
     Route: 065

REACTIONS (10)
  - Craniocerebral injury [Unknown]
  - Bladder prolapse [Unknown]
  - Dyschezia [Unknown]
  - Depression [Unknown]
  - Decreased activity [Unknown]
  - Pollakiuria [Unknown]
  - Malaise [Unknown]
  - Dysuria [Unknown]
  - Tissue injury [Unknown]
  - Hysterectomy [Unknown]
